FAERS Safety Report 9242688 (Version 2)
Quarter: 2013Q2

REPORT INFORMATION
  Report Type: Spontaneous
  Country: DE (occurrence: DE)
  Receive Date: 20130419
  Receipt Date: 20130528
  Transmission Date: 20140414
  Serious: Yes (Life-Threatening, Hospitalization)
  Sender: FDA-Public Use
  Company Number: DE-GLAXOSMITHKLINE-D0079491A

PATIENT
  Age: 68 Year
  Sex: Female

DRUGS (1)
  1. TYVERB [Suspect]
     Indication: BREAST CANCER
     Route: 048
     Dates: start: 20130328, end: 20130420

REACTIONS (7)
  - Cardiac failure [Recovered/Resolved]
  - Atrial fibrillation [Recovered/Resolved]
  - Atrial fibrillation [Recovered/Resolved]
  - Bundle branch block right [Recovered/Resolved]
  - Pulmonary oedema [Recovered/Resolved]
  - Pulmonary arterial hypertension [Recovered/Resolved]
  - Pulmonary congestion [Recovered/Resolved]
